FAERS Safety Report 5072316-X (Version None)
Quarter: 2006Q3

REPORT INFORMATION
  Report Type: 
  Country: None (occurrence: None)
  Receive Date: 20060807
  Receipt Date: 20060720
  Transmission Date: 20061208
  Serious: Yes (Other)
  Sender: FDA-Public Use
  Company Number: KR-JNJFOC-20060704149

PATIENT
  Age: 25 Year
  Sex: Male

DRUGS (4)
  1. SPORANOX [Suspect]
     Indication: FUNGAL SKIN INFECTION
     Route: 048
     Dates: start: 20060717, end: 20060719
  2. BENIDIPINE HYDROCHLORIDE [Suspect]
     Indication: HYPERTENSION
     Route: 048
  3. VITAMIN SUPPLEMENT [Concomitant]
     Route: 048
  4. GINSENG [Concomitant]
     Route: 048

REACTIONS (1)
  - ARRHYTHMIA [None]
